FAERS Safety Report 8871964 (Version 1)
Quarter: 2012Q4

REPORT INFORMATION
  Report Type: 
  Country: GB (occurrence: GB)
  Receive Date: 20121029
  Receipt Date: 20121029
  Transmission Date: 20130627
  Serious: Yes (Hospitalization)
  Sender: FDA-Public Use
  Company Number: PHFR2012GB005576

PATIENT
  Age: 63 Year
  Sex: Male

DRUGS (4)
  1. CLOZARIL [Suspect]
     Dates: start: 20121019
  2. QUETIAPINE [Concomitant]
  3. SULPRIDE [Concomitant]
  4. PRIADEL [Concomitant]
     Dosage: 700 mg, daily

REACTIONS (5)
  - Transient ischaemic attack [Recovered/Resolved]
  - Paraesthesia [Recovered/Resolved]
  - Heart rate irregular [Recovered/Resolved]
  - Bradycardia [Recovered/Resolved]
  - Dizziness [Recovered/Resolved]
